FAERS Safety Report 16024440 (Version 2)
Quarter: 2019Q1

REPORT INFORMATION
  Report Type: Report from Study
  Country: US (occurrence: US)
  Receive Date: 20190301
  Receipt Date: 20190314
  Transmission Date: 20190418
  Serious: Yes (Hospitalization, Other)
  Sender: FDA-Public Use
  Company Number: US-GILEAD-2019-0394149

PATIENT
  Age: 93 Year
  Sex: Female
  Weight: 72 kg

DRUGS (24)
  1. TRAMADOL. [Concomitant]
     Active Substance: TRAMADOL
  2. TEMOVATE [Concomitant]
     Active Substance: CLOBETASOL PROPIONATE
  3. PROBIOTICS NOS [Concomitant]
     Active Substance: PROBIOTICS NOS
  4. MULTIVITAMIN [VITAMINS NOS] [Concomitant]
  5. KEFLEX [Concomitant]
     Active Substance: CEPHALEXIN
  6. IRON [Concomitant]
     Active Substance: IRON
  7. IMDUR [Concomitant]
     Active Substance: ISOSORBIDE MONONITRATE
  8. METFORMIN [Concomitant]
     Active Substance: METFORMIN HYDROCHLORIDE
  9. PLAVIX [Concomitant]
     Active Substance: CLOPIDOGREL BISULFATE
  10. ATORVASTATIN [Concomitant]
     Active Substance: ATORVASTATIN
  11. CARVEDILOL. [Concomitant]
     Active Substance: CARVEDILOL
  12. NITROGLYCERIN. [Concomitant]
     Active Substance: NITROGLYCERIN
  13. ATROVENT [Concomitant]
     Active Substance: IPRATROPIUM BROMIDE
  14. PREMARIN [Concomitant]
     Active Substance: ESTROGENS, CONJUGATED
  15. VOLTAREN [DICLOFENAC] [Concomitant]
     Active Substance: DICLOFENAC SODIUM
  16. BIOTIN [Concomitant]
     Active Substance: BIOTIN
  17. RANOLAZINE. [Suspect]
     Active Substance: RANOLAZINE
     Indication: ANGINA PECTORIS
     Dosage: 500 MG, BID
     Route: 048
     Dates: start: 201509
  18. LISINOPRIL. [Concomitant]
     Active Substance: LISINOPRIL
  19. ASPIRIN 81 [Concomitant]
     Active Substance: ASPIRIN
  20. PROTONIX [OMEPRAZOLE] [Concomitant]
     Active Substance: OMEPRAZOLE
  21. SENOKOT [Concomitant]
     Active Substance: SENNOSIDES
  22. CELEXA [CELECOXIB] [Concomitant]
     Active Substance: CELECOXIB
  23. VESICARE [Concomitant]
     Active Substance: SOLIFENACIN SUCCINATE
  24. ZYRTEC [Concomitant]
     Active Substance: CETIRIZINE HYDROCHLORIDE

REACTIONS (2)
  - Catheterisation cardiac [Recovered/Resolved]
  - Heart valve replacement [Unknown]

NARRATIVE: CASE EVENT DATE: 20181127
